FAERS Safety Report 22065884 (Version 2)
Quarter: 2023Q1

REPORT INFORMATION
  Report Type: Other
  Country: JP (occurrence: None)
  Receive Date: 20230306
  Receipt Date: 20230327
  Transmission Date: 20230418
  Serious: Yes (Death, Other)
  Sender: FDA-Public Use
  Company Number: JP-ROCHE-3299675

PATIENT
  Age: 42 Year
  Sex: Female

DRUGS (3)
  1. CAPECITABINE [Suspect]
     Active Substance: CAPECITABINE
     Indication: Breast cancer
     Dosage: FOR TWO WEEKS EVERY THREE WEEKS.
     Route: 048
  2. PREDNISOLONE [Concomitant]
     Active Substance: PREDNISOLONE
  3. ERIBULIN [Concomitant]
     Active Substance: ERIBULIN

REACTIONS (4)
  - Disease progression [Fatal]
  - Malignant pleural effusion [Unknown]
  - Metastases to liver [Unknown]
  - Drug ineffective [Unknown]
